FAERS Safety Report 16190756 (Version 1)
Quarter: 2019Q2

REPORT INFORMATION
  Report Type: Spontaneous
  Country: US (occurrence: US)
  Receive Date: 20190412
  Receipt Date: 20190412
  Transmission Date: 20190711
  Serious: No
  Sender: FDA-Public Use
  Company Number: US-TEVA-2019-US-1024018

PATIENT
  Sex: Male
  Weight: 121 kg

DRUGS (2)
  1. REMODULIN [Suspect]
     Active Substance: TREPROSTINIL
     Indication: HYPERTENSION
     Dosage: 44 NG/KG/MIN
     Route: 065
     Dates: start: 20180809
  2. CEFALEXIN [Suspect]
     Active Substance: CEPHALEXIN
     Route: 065

REACTIONS (2)
  - Dyspnoea [Unknown]
  - Chest discomfort [Unknown]
